FAERS Safety Report 10634371 (Version 4)
Quarter: 2015Q2

REPORT INFORMATION
  Report Type: Spontaneous
  Country: US (occurrence: US)
  Receive Date: 20141205
  Receipt Date: 20150611
  Transmission Date: 20150821
  Serious: No
  Sender: FDA-Public Use
  Company Number: US-ASTELLAS-2014US012306

PATIENT
  Age: 88 Year
  Sex: Male

DRUGS (2)
  1. XTANDI [Suspect]
     Active Substance: ENZALUTAMIDE
     Indication: PROSTATE CANCER METASTATIC
     Route: 065
     Dates: start: 20131024, end: 20141021
  2. XTANDI [Suspect]
     Active Substance: ENZALUTAMIDE
     Dosage: 120 UNK, UNK
     Route: 065
     Dates: start: 201502

REACTIONS (4)
  - Fatigue [Not Recovered/Not Resolved]
  - Abdominal distension [Unknown]
  - Muscular weakness [Not Recovered/Not Resolved]
  - Underdose [Unknown]

NARRATIVE: CASE EVENT DATE: 201404
